FAERS Safety Report 24654676 (Version 1)
Quarter: 2024Q4

REPORT INFORMATION
  Report Type: Spontaneous
  Country: US (occurrence: US)
  Receive Date: 20241122
  Receipt Date: 20241122
  Transmission Date: 20250114
  Serious: No
  Sender: NOVO NORDISK
  Company Number: US-NOVOPROD-1154891

PATIENT
  Age: 29 Year
  Sex: Male

DRUGS (2)
  1. FIASP [Suspect]
     Active Substance: INSULIN ASPART
     Indication: Type 1 diabetes mellitus
     Dosage: 28 UNITS
     Route: 058
  2. TRESIBA [Concomitant]
     Active Substance: INSULIN DEGLUDEC
     Indication: Type 1 diabetes mellitus
     Dosage: UNK
     Route: 058

REACTIONS (5)
  - Asthenia [Recovered/Resolved]
  - Vomiting [Recovered/Resolved]
  - Delusion [Recovered/Resolved]
  - Wrong product administered [Recovered/Resolved]
  - Product use complaint [Unknown]
